FAERS Safety Report 9888008 (Version 2)
Quarter: 2014Q2

REPORT INFORMATION
  Report Type: Spontaneous
  Country: US (occurrence: US)
  Receive Date: 20140211
  Receipt Date: 20140515
  Transmission Date: 20141212
  Serious: Yes (Hospitalization)
  Sender: FDA-Public Use
  Company Number: US-INCYTE CORPORATION-2014IN000294

PATIENT
  Age: 91 Year
  Sex: Male
  Weight: 72.56 kg

DRUGS (10)
  1. JAKAFI [Suspect]
     Indication: MYELOFIBROSIS
     Dosage: 10 MG, QD
     Route: 048
     Dates: start: 20130925
  2. JAKAFI [Suspect]
     Indication: PROSTATE CANCER
  3. COREG [Concomitant]
  4. ZOCOR [Concomitant]
  5. GLUCOTROL [Concomitant]
  6. ULORIC [Concomitant]
  7. PROTONIX [Concomitant]
  8. SYNTHROID [Concomitant]
  9. LASIX                              /00032601/ [Concomitant]
  10. PLAVIX [Concomitant]

REACTIONS (4)
  - Atrial fibrillation [Unknown]
  - Fall [Unknown]
  - Haemoglobin decreased [Unknown]
  - Dementia [Unknown]
